FAERS Safety Report 21865979 (Version 1)
Quarter: 2023Q1

REPORT INFORMATION
  Report Type: Report from Study
  Country: US (occurrence: US)
  Receive Date: 20230116
  Receipt Date: 20230116
  Transmission Date: 20230417
  Serious: No
  Sender: FDA-Public Use
  Company Number: US-ABBVIE-4236826

PATIENT
  Age: 56 Year
  Sex: Female

DRUGS (5)
  1. RINVOQ [Suspect]
     Active Substance: UPADACITINIB
     Indication: Rheumatoid arthritis
     Route: 048
     Dates: start: 20221106
  2. ENBREL 250MG/0.5ML SYRINGE [Concomitant]
     Indication: Product used for unknown indication
  3. DULOXETINE HCL 80 MG CAPSULE DR [Concomitant]
     Indication: Product used for unknown indication
  4. RABEPRAZOLE SODIUM 20 MG TABLET DR [Concomitant]
     Indication: Product used for unknown indication
  5. MELATONlN 5 MG TABLET [Concomitant]
     Indication: Product used for unknown indication
     Dosage: 5 MG

REACTIONS (1)
  - Fatigue [Not Recovered/Not Resolved]

NARRATIVE: CASE EVENT DATE: 20221115
